FAERS Safety Report 6852042-4 (Version None)
Quarter: 2010Q3

REPORT INFORMATION
  Report Type: 
  Country: None (occurrence: None)
  Receive Date: 20100717
  Receipt Date: 20071106
  Transmission Date: 20110219
  Serious: No
  Sender: FDA-Public Use
  Company Number: US-PFIZER INC-2007094740

PATIENT
  Sex: Female
  Weight: 107 kg

DRUGS (6)
  1. CHANTIX [Suspect]
     Indication: SMOKING CESSATION THERAPY
     Dates: start: 20071103, end: 20071106
  2. PROZAC [Concomitant]
  3. XANAX [Concomitant]
  4. PREVACID [Concomitant]
  5. LOTREL [Concomitant]
  6. CRESTOR [Concomitant]

REACTIONS (2)
  - INCORRECT DOSE ADMINISTERED [None]
  - NAUSEA [None]
